FAERS Safety Report 25807330 (Version 1)
Quarter: 2025Q3

REPORT INFORMATION
  Report Type: Report from Study
  Country: US (occurrence: US)
  Receive Date: 20250916
  Receipt Date: 20250916
  Transmission Date: 20251021
  Serious: Yes (Death, Other)
  Sender: TAKEDA
  Company Number: US-TAKEDA-2025TUS080684

PATIENT
  Sex: Male

DRUGS (10)
  1. FRUQUINTINIB [Suspect]
     Active Substance: FRUQUINTINIB
     Indication: Product used for unknown indication
  2. Ezetimibe rosuvastatin mepha [Concomitant]
  3. GABAPENTIN [Concomitant]
     Active Substance: GABAPENTIN
  4. LINZESS [Concomitant]
     Active Substance: LINACLOTIDE
  5. METFORMIN [Concomitant]
     Active Substance: METFORMIN HYDROCHLORIDE
  6. OXYCODONE [Concomitant]
     Active Substance: OXYCODONE
  7. PAROXETINE [Concomitant]
     Active Substance: PAROXETINE
  8. RAMIPRIL [Concomitant]
     Active Substance: RAMIPRIL
  9. TAMSULOSIN [Concomitant]
     Active Substance: TAMSULOSIN
  10. ZOLPIDEM [Concomitant]
     Active Substance: ZOLPIDEM TARTRATE

REACTIONS (1)
  - Death [Fatal]
